FAERS Safety Report 24251922 (Version 1)
Quarter: 2024Q3

REPORT INFORMATION
  Report Type: Spontaneous
  Country: NZ (occurrence: NZ)
  Receive Date: 20240827
  Receipt Date: 20240827
  Transmission Date: 20241017
  Serious: Yes (Hospitalization)
  Sender: ROCHE
  Company Number: NZ-ROCHE-10000060527

PATIENT
  Age: 46 Year
  Sex: Female

DRUGS (1)
  1. OCRELIZUMAB [Suspect]
     Active Substance: OCRELIZUMAB
     Indication: Multiple sclerosis
     Route: 065
     Dates: start: 201911

REACTIONS (6)
  - Neutropenic sepsis [Recovered/Resolved]
  - Clostridium difficile colitis [Unknown]
  - Vaginal infection [Unknown]
  - Colitis microscopic [Unknown]
  - Abdominal pain upper [Unknown]
  - Colitis [Unknown]

NARRATIVE: CASE EVENT DATE: 20230101
